FAERS Safety Report 14975022 (Version 1)
Quarter: 2018Q2

REPORT INFORMATION
  Report Type: Spontaneous
  Country: US (occurrence: US)
  Receive Date: 20180515
  Receipt Date: 20180515
  Transmission Date: 20180711
  Serious: Yes (Hospitalization, Other)
  Sender: FDA-Public Use
  Company Number: None

PATIENT
  Age: 62 Year
  Sex: Female
  Weight: 53.1 kg

DRUGS (3)
  1. RECLAST [Suspect]
     Active Substance: ZOLEDRONIC ACID
     Indication: OSTEOPOROSIS
     Route: 041
     Dates: start: 20180501, end: 20180501
  2. HYDROCHLOROTHIAZIDE 12.5 MG [Concomitant]
     Active Substance: HYDROCHLOROTHIAZIDE
     Dates: start: 20180420, end: 20180502
  3. POTASSIUM CITRATE 5 MEQ [Concomitant]
     Dates: start: 20180420, end: 20180502

REACTIONS (2)
  - Hyponatraemia [None]
  - Amnesia [None]

NARRATIVE: CASE EVENT DATE: 20180503
